FAERS Safety Report 6346360-6 (Version None)
Quarter: 2009Q3

REPORT INFORMATION
  Report Type: 
  Country: None (occurrence: None)
  Receive Date: 20090821
  Receipt Date: 20090624
  Transmission Date: 20100115
  Serious: No
  Sender: FDA-Public Use
  Company Number: 8047380

PATIENT
  Age: 46 Year
  Sex: Female
  Weight: 95.4 kg

DRUGS (1)
  1. CIMZIA [Suspect]
     Dosage: 400 MG SC
     Route: 058
     Dates: start: 20090506

REACTIONS (4)
  - ABDOMINAL PAIN UPPER [None]
  - GASTROENTERITIS VIRAL [None]
  - PAIN IN EXTREMITY [None]
  - PARAESTHESIA [None]
